FAERS Safety Report 8716348 (Version 2)
Quarter: 2012Q4

REPORT INFORMATION
  Report Type: 
  Country: US (occurrence: US)
  Receive Date: 20120810
  Receipt Date: 20120918
  Transmission Date: 20130627
  Serious: No
  Sender: FDA-Public Use
  Company Number: US-009507513-1207USA007091

PATIENT

DRUGS (8)
  1. PEGINTRON [Suspect]
     Dosage: Redipen,150 Microgram per 0.5 ml ,4 syringe per pack
     Route: 058
  2. REBETOL [Suspect]
     Dosage: 200 mg, UNK
  3. TELAPREVIR [Suspect]
     Dosage: 375 mg, UNK
  4. MAGNESIA [MILK OF] [Concomitant]
  5. AMITIZA [Concomitant]
     Dosage: 8 Microgram, UNK
  6. ALKA-SELTZER [Concomitant]
  7. ETODOLAC [Concomitant]
     Dosage: 400 mg, UNK
  8. ACETAMINOPHEN (+) HYDROCODONE BITARTRATE [Concomitant]
     Dosage: 2.5-3.25

REACTIONS (8)
  - Bone pain [Unknown]
  - Ocular hyperaemia [Unknown]
  - Constipation [Unknown]
  - Fatigue [Unknown]
  - Pyrexia [Unknown]
  - Abdominal pain [Unknown]
  - Pneumonia [Unknown]
  - Platelet count decreased [Unknown]
